FAERS Safety Report 10984438 (Version 5)
Quarter: 2016Q4

REPORT INFORMATION
  Report Type: Report from Study
  Country: US (occurrence: US)
  Receive Date: 20150403
  Receipt Date: 20161017
  Transmission Date: 20170206
  Serious: Yes (Hospitalization, Other)
  Sender: FDA-Public Use
  Company Number: US-ACTELION-A-NJ2015-115491

PATIENT
  Age: 50 Year
  Sex: Female

DRUGS (2)
  1. TRACLEER [Suspect]
     Active Substance: BOSENTAN
     Indication: PULMONARY ARTERIAL HYPERTENSION
     Dosage: 62.5 MG, BID
     Route: 048
     Dates: start: 20110324
  2. KEFLEX [Concomitant]
     Active Substance: CEPHALEXIN

REACTIONS (7)
  - Staphylococcal infection [Unknown]
  - Hip arthroplasty [Unknown]
  - Pyrexia [Unknown]
  - Tooth abscess [Unknown]
  - Shoulder operation [Unknown]
  - Arthralgia [Unknown]
  - Knee operation [Unknown]

NARRATIVE: CASE EVENT DATE: 20150320
